FAERS Safety Report 9877182 (Version 1)
Quarter: 2014Q1

REPORT INFORMATION
  Report Type: Spontaneous
  Country: IT (occurrence: IT)
  Receive Date: 20140206
  Receipt Date: 20140206
  Transmission Date: 20141002
  Serious: Yes (Hospitalization, Other)
  Sender: FDA-Public Use
  Company Number: IT-BAYER-2014-013612

PATIENT
  Sex: Female
  Weight: .94 kg

DRUGS (6)
  1. NIFEDIPINE [Suspect]
     Indication: BLOOD PRESSURE MANAGEMENT
     Route: 064
  2. NIFEDIPINE [Suspect]
     Indication: BLOOD PRESSURE MANAGEMENT
     Route: 064
  3. INSULIN [Concomitant]
     Route: 064
  4. INSULIN [Concomitant]
     Route: 064
  5. METHYLDOPA [Concomitant]
     Route: 064
  6. METHYLDOPA [Concomitant]
     Route: 064

REACTIONS (3)
  - Premature baby [Recovered/Resolved]
  - Low birth weight baby [Recovered/Resolved]
  - Foetal exposure timing unspecified [None]
